FAERS Safety Report 17858777 (Version 2)
Quarter: 2020Q2

REPORT INFORMATION
  Report Type: Report from Study
  Country: None (occurrence: US)
  Receive Date: 20200604
  Receipt Date: 20200605
  Transmission Date: 20200714
  Serious: No
  Sender: FDA-Public Use
  Company Number: US-US WORLDMEDS, LLC-USW201912-002386

PATIENT
  Age: 69 Year
  Sex: Female
  Weight: 61.23 kg

DRUGS (9)
  1. TRAZADOME [Concomitant]
  2. APOKYN [Suspect]
     Active Substance: APOMORPHINE HYDROCHLORIDE
     Indication: PARKINSON^S DISEASE
     Route: 058
     Dates: start: 20191218
  3. LEVOTHYROXINE. [Concomitant]
     Active Substance: LEVOTHYROXINE
     Indication: HYPOTHYROIDISM
  4. SINEMET [Concomitant]
     Active Substance: CARBIDOPA\LEVODOPA
     Indication: PARKINSON^S DISEASE
  5. TIGAN [Concomitant]
     Active Substance: TRIMETHOBENZAMIDE HYDROCHLORIDE
  6. FLUORMETHALONE [Concomitant]
     Active Substance: FLUOROMETHOLONE
  7. EFFEXOR [Concomitant]
     Active Substance: VENLAFAXINE HYDROCHLORIDE
     Indication: DEPRESSION
  8. OSMOLEX [Concomitant]
     Indication: PARKINSON^S DISEASE
  9. CLONAZAPAM [Concomitant]
     Active Substance: CLONAZEPAM

REACTIONS (4)
  - Fatigue [Recovering/Resolving]
  - Yawning [Recovering/Resolving]
  - Aphasia [Recovering/Resolving]
  - Hunger [Recovering/Resolving]

NARRATIVE: CASE EVENT DATE: 20191218
